FAERS Safety Report 5804992-5 (Version None)
Quarter: 2008Q3

REPORT INFORMATION
  Report Type: 
  Country: None (occurrence: None)
  Receive Date: 20080709
  Receipt Date: 20080630
  Transmission Date: 20090109
  Serious: Yes (Other)
  Sender: FDA-Public Use
  Company Number: NL-PFIZER INC-2008055145

PATIENT
  Age: 51 Year
  Sex: Female
  Weight: 74 kg

DRUGS (7)
  1. IRINOTECAN HCL [Suspect]
     Indication: GALLBLADDER CANCER
     Route: 042
  2. IRINOTECAN HCL [Interacting]
     Route: 042
  3. IRINOTECAN HCL [Interacting]
     Route: 042
  4. VALPROIC ACID [Interacting]
  5. DEXAMETHASONE [Concomitant]
  6. GRANISETRON HCL [Concomitant]
  7. ATROPINE [Concomitant]
     Indication: CHOLINERGIC SYNDROME

REACTIONS (4)
  - DRUG INTERACTION [None]
  - HEPATOTOXICITY [None]
  - NEUROPATHY PERIPHERAL [None]
  - NEUTROPENIA [None]
